FAERS Safety Report 6258489-1 (Version None)
Quarter: 2009Q3

REPORT INFORMATION
  Report Type: 
  Country: None (occurrence: None)
  Receive Date: 20090707
  Receipt Date: 20090701
  Transmission Date: 20100115
  Serious: Yes (Other)
  Sender: FDA-Public Use
  Company Number: NO-JNJFOC-20090700168

PATIENT
  Sex: Male

DRUGS (7)
  1. REMICADE [Suspect]
     Indication: RHEUMATOID ARTHRITIS
     Route: 042
  2. COZAAR [Concomitant]
  3. ASCORBIC ACID [Concomitant]
  4. NORVASC [Concomitant]
  5. LOVAZA [Concomitant]
  6. PREDNISOLONE [Concomitant]
  7. MAREVAN [Concomitant]

REACTIONS (1)
  - COLORECTAL CANCER [None]
